FAERS Safety Report 9708396 (Version 3)
Quarter: 2014Q1

REPORT INFORMATION
  Report Type: Spontaneous
  Country: DE (occurrence: DE)
  Receive Date: 20131125
  Receipt Date: 20140210
  Transmission Date: 20141002
  Serious: Yes (Other)
  Sender: FDA-Public Use
  Company Number: DE-TEVA-446955GER

PATIENT
  Age: 55 Year
  Sex: Male
  Weight: 85 kg

DRUGS (2)
  1. NITROFURANTOIN-RATIOPHARM 100 MG RETARDKAPSELN [Suspect]
     Indication: UROGENITAL INFECTION BACTERIAL
     Dosage: 200 MILLIGRAM DAILY; 1-0-1
     Route: 048
     Dates: start: 20131008, end: 20131107
  2. NITROFURANTOIN-RATIOPHARM 100 MG RETARDKAPSELN [Suspect]
     Indication: PROSTATIC SPECIFIC ANTIGEN INCREASED

REACTIONS (5)
  - Atrial fibrillation [Unknown]
  - Chest discomfort [Recovered/Resolved]
  - Heart rate irregular [Not Recovered/Not Resolved]
  - Syncope [Recovered/Resolved]
  - Dyspnoea [Recovered/Resolved]
